FAERS Safety Report 21017725 (Version 1)
Quarter: 2022Q2

REPORT INFORMATION
  Report Type: Other
  Country: US (occurrence: US)
  Receive Date: 20220628
  Receipt Date: 20220628
  Transmission Date: 20220721
  Serious: Yes (Other)
  Sender: FDA-Public Use
  Company Number: US-SERVIER-S22006510

PATIENT

DRUGS (1)
  1. ONCASPAR [Suspect]
     Active Substance: PEGASPARGASE
     Indication: Acute lymphocytic leukaemia
     Dosage: 3750 IU/DOSE
     Route: 065

REACTIONS (2)
  - Pulmonary embolism [Recovered/Resolved]
  - Device related thrombosis [Recovered/Resolved]
